FAERS Safety Report 4678259-5 (Version None)
Quarter: 2005Q2

REPORT INFORMATION
  Report Type: 
  Country: None (occurrence: None)
  Receive Date: 20050601
  Receipt Date: 20050224
  Transmission Date: 20051028
  Serious: Yes (Hospitalization, Other)
  Sender: FDA-Public Use
  Company Number: 200511752GDDC

PATIENT
  Age: 65 Year
  Sex: Female

DRUGS (5)
  1. KETEK [Suspect]
     Indication: BRONCHITIS
     Route: 048
     Dates: start: 20050202, end: 20050212
  2. LITHANE [Suspect]
     Indication: BIPOLAR I DISORDER
     Dates: start: 19900101
  3. ALTACE [Concomitant]
     Dates: start: 20040601
  4. SYNTHROID [Concomitant]
  5. ADVAIR DISKUS 100/50 [Concomitant]

REACTIONS (8)
  - AMNESIA [None]
  - ANTIPSYCHOTIC DRUG LEVEL ABOVE THERAPEUTIC [None]
  - BLOOD CREATININE INCREASED [None]
  - CONFUSIONAL STATE [None]
  - DRUG INTERACTION [None]
  - METABOLIC ENCEPHALOPATHY [None]
  - SPEECH DISORDER [None]
  - THERAPEUTIC AGENT TOXICITY [None]
